FAERS Safety Report 25650986 (Version 2)
Quarter: 2025Q3

REPORT INFORMATION
  Report Type: Spontaneous
  Country: US (occurrence: US)
  Receive Date: 20250806
  Receipt Date: 20250822
  Transmission Date: 20251020
  Serious: Yes (Other)
  Sender: TEVA
  Company Number: US-TEVA-VS-3358716

PATIENT

DRUGS (2)
  1. LEVETIRACETAM [Suspect]
     Active Substance: LEVETIRACETAM
     Indication: Epilepsy
     Dosage: THE NEONATE^S MOTHER RECEIVED LEVETIRACETAM 3000MG/DAY
     Route: 064
  2. CENOBAMATE [Suspect]
     Active Substance: CENOBAMATE
     Indication: Epilepsy
     Route: 064

REACTIONS (2)
  - Small for dates baby [Unknown]
  - Foetal exposure during pregnancy [Unknown]
